FAERS Safety Report 7437554-7 (Version None)
Quarter: 2011Q2

REPORT INFORMATION
  Report Type: 
  Country: None (occurrence: None)
  Receive Date: 20110426
  Receipt Date: 20110420
  Transmission Date: 20111010
  Serious: Yes (Hospitalization)
  Sender: FDA-Public Use
  Company Number: US-GILEAD-2011-0037815

PATIENT
  Age: 74 Year
  Sex: Female

DRUGS (3)
  1. RANEXA [Suspect]
     Indication: PRODUCT USED FOR UNKNOWN INDICATION
     Route: 048
  2. NITROGLYCERIN [Concomitant]
  3. POTASSIUM [Concomitant]

REACTIONS (8)
  - VENTRICULAR EXTRASYSTOLES [None]
  - PARESIS [None]
  - ASTHENIA [None]
  - DIZZINESS [None]
  - VISUAL IMPAIRMENT [None]
  - FALL [None]
  - SENSORY LOSS [None]
  - ELECTROCARDIOGRAM QT PROLONGED [None]
